FAERS Safety Report 7883619-5 (Version None)
Quarter: 2011Q4

REPORT INFORMATION
  Report Type: 
  Country: None (occurrence: None)
  Receive Date: 20111102
  Receipt Date: 20111025
  Transmission Date: 20120403
  Serious: Yes (Hospitalization)
  Sender: FDA-Public Use
  Company Number: US-US-EMD SERONO, INC.-7091940

PATIENT
  Sex: Female

DRUGS (3)
  1. REBIF [Suspect]
     Indication: MULTIPLE SCLEROSIS
     Route: 058
     Dates: start: 20100517
  2. AMPYRA [Concomitant]
     Indication: GAIT DISTURBANCE
  3. ESTRADIOL [Concomitant]
     Indication: HOT FLUSH

REACTIONS (5)
  - MULTIPLE SCLEROSIS RELAPSE [None]
  - INJECTION SITE ERYTHEMA [None]
  - CHOLELITHIASIS [None]
  - INJECTION SITE PAIN [None]
  - NECK MASS [None]
